FAERS Safety Report 17397222 (Version 1)
Quarter: 2020Q1

REPORT INFORMATION
  Report Type: Spontaneous
  Country: GB (occurrence: GB)
  Receive Date: 20200210
  Receipt Date: 20200210
  Transmission Date: 20200409
  Serious: Yes (Other)
  Sender: FDA-Public Use
  Company Number: GB-ALLERGAN-2005524US

PATIENT
  Sex: Male

DRUGS (2)
  1. LUMIGAN [Suspect]
     Active Substance: BIMATOPROST
     Indication: GLAUCOMA
     Dosage: UNK
     Route: 047
     Dates: start: 201902
  2. TORUSOPT 20MG/ML [Concomitant]
     Dosage: UNK

REACTIONS (2)
  - Cataract [Not Recovered/Not Resolved]
  - Nightmare [Not Recovered/Not Resolved]
